FAERS Safety Report 8359054 (Version 4)
Quarter: 2012Q4

REPORT INFORMATION
  Report Type: 
  Country: AU (occurrence: AU)
  Receive Date: 20120127
  Receipt Date: 20120921
  Transmission Date: 20130627
  Serious: Yes (Other)
  Sender: FDA-Public Use
  Company Number: PHHY2012AU006846

PATIENT
  Age: 71 Year
  Sex: Male
  Weight: 84 kg

DRUGS (8)
  1. CLOZARIL [Suspect]
     Indication: SCHIZOPHRENIA
     Dosage: 300 mg, nocte
  2. CLOZARIL [Suspect]
     Dosage: 400 mg per day
     Route: 048
     Dates: start: 2009
  3. EPILIM [Concomitant]
     Dosage: 500 mg mane, 1 g nocte
  4. LITHIUM [Concomitant]
     Dosage: 250 mg, bd
  5. CLOPIDOGREL [Concomitant]
     Dosage: 75 mg, mane
  6. METFORMIN SR [Concomitant]
     Dosage: 500 mg, nocte
  7. MOVICOL [Concomitant]
     Dosage: 1 sachet bd
  8. COLOXYL WITH SENNA [Concomitant]
     Dosage: 2 tablets daily

REACTIONS (21)
  - Left ventricular hypertrophy [Unknown]
  - Left ventricular dysfunction [Unknown]
  - Systolic dysfunction [Unknown]
  - Ejection fraction decreased [Unknown]
  - Ventricular hypokinesia [Unknown]
  - Cardiac failure [Unknown]
  - Left atrial dilatation [Unknown]
  - Aortic dilatation [Unknown]
  - Cardiac flutter [Recovered/Resolved]
  - Pericardial effusion [Unknown]
  - Malaise [Recovered/Resolved]
  - Dyspnoea [Recovered/Resolved]
  - Chest pain [Recovered/Resolved]
  - Dizziness [Recovered/Resolved]
  - Pallor [Unknown]
  - Palpitations [Recovered/Resolved]
  - Electrocardiogram abnormal [Unknown]
  - ECG signs of myocardial ischaemia [Unknown]
  - Hyperhidrosis [Recovered/Resolved]
  - Troponin I increased [Unknown]
  - Antipsychotic drug level increased [Unknown]
